FAERS Safety Report 19986501 (Version 2)
Quarter: 2022Q1

REPORT INFORMATION
  Report Type: Other
  Country: US (occurrence: US)
  Receive Date: 20211022
  Receipt Date: 20220324
  Transmission Date: 20220424
  Serious: Yes (Other)
  Sender: FDA-Public Use
  Company Number: US-UROVANT SCIENCES GMBH-202110-URV-000598

PATIENT
  Sex: Female

DRUGS (1)
  1. GEMTESA [Suspect]
     Active Substance: VIBEGRON
     Indication: Product used for unknown indication
     Dosage: UNKNOWN
     Route: 065

REACTIONS (1)
  - Upper limb fracture [Unknown]
